FAERS Safety Report 22115366 (Version 1)
Quarter: 2023Q1

REPORT INFORMATION
  Report Type: Report from Study
  Country: US (occurrence: US)
  Receive Date: 20230320
  Receipt Date: 20230320
  Transmission Date: 20230417
  Serious: No
  Sender: FDA-Public Use
  Company Number: US-002147023-NVSC2023US060030

PATIENT
  Sex: Female

DRUGS (1)
  1. KESIMPTA [Suspect]
     Active Substance: OFATUMUMAB
     Indication: Relapsing multiple sclerosis
     Dosage: UNK
     Route: 065
     Dates: start: 20230212

REACTIONS (10)
  - Gait disturbance [Recovering/Resolving]
  - Limb discomfort [Recovered/Resolved]
  - Influenza like illness [Recovering/Resolving]
  - Headache [Unknown]
  - Rhinorrhoea [Recovering/Resolving]
  - Pyrexia [Unknown]
  - Chills [Unknown]
  - Fatigue [Recovering/Resolving]
  - Back pain [Recovered/Resolved]
  - Arthralgia [Recovered/Resolved]
